FAERS Safety Report 26173968 (Version 1)
Quarter: 2025Q4

REPORT INFORMATION
  Report Type: Spontaneous
  Country: US (occurrence: US)
  Receive Date: 20251218
  Receipt Date: 20251218
  Transmission Date: 20260118
  Serious: Yes (Death)
  Sender: ADARE PHARMACEUTICALS
  Company Number: US-ADAREPHARM-2025-US-000112

PATIENT
  Age: 18 Year
  Sex: Female

DRUGS (2)
  1. PROPRANOLOL [Suspect]
     Active Substance: PROPRANOLOL HYDROCHLORIDE
     Indication: Graves^ disease
  2. METHIMAZOLE [Suspect]
     Active Substance: METHIMAZOLE
     Indication: Graves^ disease

REACTIONS (1)
  - Cardiac arrest [Fatal]
